FAERS Safety Report 16571581 (Version 1)
Quarter: 2019Q3

REPORT INFORMATION
  Report Type: Spontaneous
  Country: US (occurrence: US)
  Receive Date: 20190713
  Receipt Date: 20190713
  Transmission Date: 20191004
  Serious: Yes (Disabling, Other)
  Sender: FDA-Public Use
  Company Number: None

PATIENT
  Age: 60 Year
  Sex: Male
  Weight: 74.25 kg

DRUGS (1)
  1. ATIVAN [Suspect]
     Active Substance: LORAZEPAM
     Indication: INSOMNIA
     Route: 048
     Dates: start: 20160401, end: 20160414

REACTIONS (22)
  - Muscle twitching [None]
  - Night blindness [None]
  - Headache [None]
  - Photophobia [None]
  - Hyperacusis [None]
  - Fear [None]
  - Agoraphobia [None]
  - Weight decreased [None]
  - Temperature intolerance [None]
  - Sleep deficit [None]
  - Tinnitus [None]
  - Restless legs syndrome [None]
  - Fatigue [None]
  - Chills [None]
  - Tongue discomfort [None]
  - Depression [None]
  - Agitation [None]
  - Dizziness [None]
  - Influenza like illness [None]
  - Therapeutic product effect decreased [None]
  - Drug ineffective [None]
  - Eye irritation [None]

NARRATIVE: CASE EVENT DATE: 20160415
